FAERS Safety Report 5671687-0 (Version None)
Quarter: 2008Q2

REPORT INFORMATION
  Report Type: 
  Country: None (occurrence: None)
  Receive Date: 20080229
  Receipt Date: 20071219
  Transmission Date: 20081010
  Serious: No
  Sender: FDA-Public Use
  Company Number: PHEH2007US16015

PATIENT
  Age: 3 Year
  Sex: Male

DRUGS (1)
  1. EXJADE(*CGP 72670*) DISPERSABLE TABLET [Suspect]
     Indication: APLASTIC ANAEMIA
     Dosage: 375 MG, QD, ORAL
     Route: 048
     Dates: start: 20071204

REACTIONS (3)
  - CENTRAL VENOUS CATHETERISATION [None]
  - PAIN [None]
  - PYREXIA [None]
